FAERS Safety Report 17031809 (Version 9)
Quarter: 2020Q3

REPORT INFORMATION
  Report Type: Spontaneous
  Country: CA (occurrence: CA)
  Receive Date: 20191114
  Receipt Date: 20200730
  Transmission Date: 20201102
  Serious: Yes (Hospitalization, Other)
  Sender: FDA-Public Use
  Company Number: CA-ACTELION-A-NJ2019-196138

PATIENT
  Age: 68 Year
  Sex: Female
  Weight: 81 kg

DRUGS (28)
  1. UPTRAVI [Suspect]
     Active Substance: SELEXIPAG
     Dosage: 2000 MCG, QD
     Route: 048
     Dates: start: 20190930, end: 20191114
  2. UPTRAVI [Suspect]
     Active Substance: SELEXIPAG
     Dosage: 1000 MCG (800 MCG/200MCG) BID
     Route: 048
     Dates: start: 20191007
  3. LANSOPRAZOLE. [Concomitant]
     Active Substance: LANSOPRAZOLE
  4. URSODIOL. [Concomitant]
     Active Substance: URSODIOL
  5. ADCIRCA [Suspect]
     Active Substance: TADALAFIL
     Indication: PULMONARY ARTERIAL HYPERTENSION
     Dosage: 40 MG
     Route: 065
  6. UPTRAVI [Suspect]
     Active Substance: SELEXIPAG
     Dosage: 1600 MCG
     Route: 048
     Dates: start: 20191125
  7. OMEGA 3 [Concomitant]
     Active Substance: OMEGA-3 FATTY ACIDS
  8. UPTRAVI [Suspect]
     Active Substance: SELEXIPAG
     Dosage: 400 MCG, QD
     Route: 048
     Dates: start: 20190902, end: 20190908
  9. UPTRAVI [Suspect]
     Active Substance: SELEXIPAG
     Dosage: 2000 MCG TOTAL DAILY DOSE
     Route: 048
     Dates: start: 20200321
  10. TRACLEER [Suspect]
     Active Substance: BOSENTAN
     Indication: PULMONARY ARTERIAL HYPERTENSION
     Dosage: 250 MG, QD
     Route: 048
     Dates: start: 2012
  11. LASIX [Concomitant]
     Active Substance: FUROSEMIDE
  12. RESTASIS [Concomitant]
     Active Substance: CYCLOSPORINE
  13. DEXAMETHASONE. [Concomitant]
     Active Substance: DEXAMETHASONE
  14. LOTEMAX [Concomitant]
     Active Substance: LOTEPREDNOL ETABONATE
     Route: 047
  15. UPTRAVI [Suspect]
     Active Substance: SELEXIPAG
     Dosage: 1200 MCG, BID
     Route: 048
  16. UPTRAVI [Suspect]
     Active Substance: SELEXIPAG
     Dosage: 2400 MCG, QD
     Route: 048
     Dates: start: 20191115, end: 20191124
  17. UPTRAVI [Suspect]
     Active Substance: SELEXIPAG
     Dosage: 3200 MCG TOTAL DAILY DOSE
     Route: 048
     Dates: start: 20191125, end: 20200320
  18. UPTRAVI [Suspect]
     Active Substance: SELEXIPAG
     Dosage: 1200 MCG, BID
     Route: 048
  19. MIRABEGRON [Concomitant]
     Active Substance: MIRABEGRON
  20. UPTRAVI [Suspect]
     Active Substance: SELEXIPAG
     Indication: PULMONARY ARTERIAL HYPERTENSION
     Dosage: 1000 MCG, BID
     Route: 048
  21. UPTRAVI [Suspect]
     Active Substance: SELEXIPAG
     Dosage: 800 MCG, QD
     Route: 048
     Dates: start: 20190909, end: 20190915
  22. UPTRAVI [Suspect]
     Active Substance: SELEXIPAG
     Dosage: 1000 MCG (800 MCG/200MCG) BID
     Route: 048
  23. CRESTOR [Concomitant]
     Active Substance: ROSUVASTATIN CALCIUM
  24. VITAMIN D [Concomitant]
     Active Substance: VITAMIN D NOS
  25. VITAMIN B12 [Concomitant]
     Active Substance: CYANOCOBALAMIN
  26. UPTRAVI [Suspect]
     Active Substance: SELEXIPAG
     Dosage: 1200 MCG, QD
     Route: 048
     Dates: start: 20190916, end: 20190922
  27. UPTRAVI [Suspect]
     Active Substance: SELEXIPAG
     Dosage: 1600 MCG, QD
     Route: 048
     Dates: start: 20190923, end: 20190929
  28. PROZAC [Concomitant]
     Active Substance: FLUOXETINE HYDROCHLORIDE

REACTIONS (35)
  - Escherichia bacteraemia [Recovering/Resolving]
  - Ascites [Unknown]
  - Portal hypertensive gastropathy [Unknown]
  - Hepatorenal syndrome [Unknown]
  - Packed red blood cell transfusion [Recovered/Resolved]
  - Nausea [Recovered/Resolved]
  - Abdominal pain [Not Recovered/Not Resolved]
  - Dizziness [Recovered/Resolved]
  - Fluid retention [Recovering/Resolving]
  - Abdominal cavity drainage [Recovering/Resolving]
  - Kidney infection [Recovering/Resolving]
  - Polyuria [Recovering/Resolving]
  - Feeling abnormal [Recovered/Resolved]
  - Sepsis [Not Recovered/Not Resolved]
  - Hypotension [Not Recovered/Not Resolved]
  - Anaemia [Recovered/Resolved]
  - Headache [Not Recovered/Not Resolved]
  - Pain [Not Recovered/Not Resolved]
  - Faeces discoloured [Not Recovered/Not Resolved]
  - Vomiting [Recovered/Resolved]
  - Catheterisation cardiac [Unknown]
  - Body temperature abnormal [Not Recovered/Not Resolved]
  - Oedema [Not Recovered/Not Resolved]
  - Diarrhoea [Not Recovered/Not Resolved]
  - Hepatic cirrhosis [Unknown]
  - Frequent bowel movements [Recovering/Resolving]
  - Malaise [Recovered/Resolved]
  - Musculoskeletal stiffness [Recovered/Resolved]
  - Blood count abnormal [Unknown]
  - Haemorrhage [Unknown]
  - Body temperature increased [Recovering/Resolving]
  - Gastrointestinal haemorrhage [Recovered/Resolved]
  - Gastric varices [Not Recovered/Not Resolved]
  - Gastric ulcer [Not Recovered/Not Resolved]
  - Faeces soft [Recovered/Resolved]

NARRATIVE: CASE EVENT DATE: 20190930
